FAERS Safety Report 5638384-9 (Version None)
Quarter: 2008Q1

REPORT INFORMATION
  Report Type: 
  Country: None (occurrence: None)
  Receive Date: 20080222
  Receipt Date: 20080214
  Transmission Date: 20080703
  Serious: Yes (Hospitalization)
  Sender: FDA-Public Use
  Company Number: GXKR2008SE01755

PATIENT
  Age: 82 Year
  Sex: Male

DRUGS (9)
  1. RIMACTANE [Suspect]
     Indication: INFECTION
     Dosage: 600 MG, ORAL
     Route: 048
     Dates: start: 20070901, end: 20071021
  2. DEXOFEN (DEXTROPROPOXYPHENE NAPSILATE) UNKNOWN [Suspect]
     Indication: PAIN IN EXTREMITY
     Dosage: ORAL
     Route: 048
     Dates: start: 20070901, end: 20071011
  3. CLINDAMYCIN (CLINDAMYCIN) HARD-GELATIN GAPSULE [Concomitant]
  4. RAMIPRIL [Concomitant]
  5. ACETAMINOPHEN [Concomitant]
  6. LEVOMEPROMAZINE MALEATE (LEVOMEPROMAZINE MALEATE) TABLET [Concomitant]
  7. FUROSEMIDE [Concomitant]
  8. BISOPROLOL HEMIFUMARATE (BISOPROLOL HEMIFUMARATE) FILM-COATED TABLET [Concomitant]
  9. ACETYLSALICYLIC ACID (ACETYLSALICYLIC ACID) TABLET [Concomitant]

REACTIONS (6)
  - ENCEPHALOPATHY [None]
  - FEELING ABNORMAL [None]
  - GAIT DISTURBANCE [None]
  - HALLUCINATION [None]
  - MOTOR DYSFUNCTION [None]
  - SPEECH DISORDER [None]
